FAERS Safety Report 12305466 (Version 1)
Quarter: 2016Q2

REPORT INFORMATION
  Report Type: Report from Study
  Country: BR (occurrence: BR)
  Receive Date: 20160426
  Receipt Date: 20160426
  Transmission Date: 20160815
  Serious: Yes (Other)
  Sender: FDA-Public Use
  Company Number: PHHY2016BR046408

PATIENT
  Age: 66 Year
  Sex: Female
  Weight: 66 kg

DRUGS (8)
  1. ASA [Concomitant]
     Active Substance: ASPIRIN
     Indication: CARDIAC DISORDER
     Dosage: 1 DF, QD
     Route: 048
     Dates: start: 2014
  2. EXFORGE HCT [Suspect]
     Active Substance: AMLODIPINE BESYLATE\HYDROCHLOROTHIAZIDE\VALSARTAN
     Dosage: 5/12.5/160 MG (AMLODIPINE,HYDROCHLOROTHIAZIDE,VALSARTAN)
     Route: 048
     Dates: start: 201602, end: 201603
  3. EXFORGE HCT [Suspect]
     Active Substance: AMLODIPINE BESYLATE\HYDROCHLOROTHIAZIDE\VALSARTAN
     Dosage: 5/12.5/160 MG (AMLODIPINE,HYDROCHLOROTHIAZIDE,VALSARTAN)
     Route: 048
     Dates: start: 201603
  4. VARICOSS [Concomitant]
     Indication: VARICOSE VEIN
     Dosage: 2 DF, QD (15 MG)
     Route: 048
     Dates: start: 2014
  5. DIOVAN HCT [Suspect]
     Active Substance: HYDROCHLOROTHIAZIDE\VALSARTAN
     Indication: PRODUCT USED FOR UNKNOWN INDICATION
     Dosage: 25/320 MG (HYDROCHLOROTHIAZIDE, VALSARTAN)
     Route: 048
     Dates: start: 201602, end: 201603
  6. EXFORGE HCT [Suspect]
     Active Substance: AMLODIPINE BESYLATE\HYDROCHLOROTHIAZIDE\VALSARTAN
     Indication: HYPERTENSION
     Dosage: 160 MG, QD
     Route: 048
     Dates: start: 2014
  7. DIURIT [Concomitant]
     Indication: DIURETIC THERAPY
     Dosage: 1 DF, QD (MANY YEARS AGO)
     Route: 048
  8. NOVOPRAZOL [Concomitant]
     Indication: ABDOMINAL DISCOMFORT
     Dosage: 1 DF, QD
     Route: 048
     Dates: start: 2014

REACTIONS (8)
  - Dizziness [Recovered/Resolved]
  - Laziness [Unknown]
  - Blood pressure fluctuation [Unknown]
  - Blood pressure decreased [Recovered/Resolved]
  - Lethargy [Recovered/Resolved]
  - Malaise [Recovered/Resolved]
  - Hyperhidrosis [Recovered/Resolved]
  - Fear [Unknown]

NARRATIVE: CASE EVENT DATE: 201602
